FAERS Safety Report 11266105 (Version 1)
Quarter: 2015Q3

REPORT INFORMATION
  Report Type: Spontaneous
  Country: ZM (occurrence: ZM)
  Receive Date: 20150713
  Receipt Date: 20150713
  Transmission Date: 20151125
  Serious: Yes (Death)
  Sender: FDA-Public Use
  Company Number: ZM-PFIZER INC-2015221995

PATIENT
  Age: 2 Year

DRUGS (1)
  1. ZITHROMAX [Suspect]
     Active Substance: AZITHROMYCIN DIHYDRATE
     Indication: TRACHOMA
     Dosage: 1200 MG, UNK
     Route: 048

REACTIONS (2)
  - Death [Fatal]
  - Foaming at mouth [Unknown]
